FAERS Safety Report 9513417 (Version 1)
Quarter: 2013Q3

REPORT INFORMATION
  Report Type: Not Available
  Country: US (occurrence: US)
  Receive Date: 20130910
  Receipt Date: 20130910
  Transmission Date: 20140515
  Serious: No
  Sender: FDA-Public Use
  Company Number: US-TARO-2012P1056377

PATIENT
  Age: 82 Year
  Sex: Male

DRUGS (3)
  1. WARFARIN SODIUM TABLETS USP 4MG [Suspect]
     Indication: ATRIAL FIBRILLATION
     Route: 048
     Dates: start: 20120220, end: 201208
  2. WARFARIN SODIUM TABLETS USP 4MG [Suspect]
     Indication: ATRIAL FIBRILLATION
     Route: 048
     Dates: start: 201208
  3. LEVOTHYROXINE [Concomitant]
     Dates: start: 2005

REACTIONS (1)
  - International normalised ratio decreased [Not Recovered/Not Resolved]
